FAERS Safety Report 8951188 (Version 2)
Quarter: 2012Q4

REPORT INFORMATION
  Report Type: Report from Study
  Country: AU (occurrence: AU)
  Receive Date: 20121207
  Receipt Date: 20121212
  Transmission Date: 20130627
  Serious: Yes (Hospitalization)
  Sender: FDA-Public Use
  Company Number: AU-AMGEN-AUSCT2012077903

PATIENT
  Age: 15 Year
  Sex: Female

DRUGS (1)
  1. CINACALCET HCL [Suspect]
     Indication: HYPERPARATHYROIDISM SECONDARY
     Dosage: 60 mg, UNK
     Dates: start: 20120723, end: 20121128

REACTIONS (2)
  - Treatment noncompliance [Unknown]
  - Hypertension [Unknown]
